FAERS Safety Report 21087090 (Version 2)
Quarter: 2022Q3

REPORT INFORMATION
  Report Type: Spontaneous
  Country: US (occurrence: US)
  Receive Date: 20220715
  Receipt Date: 20220726
  Transmission Date: 20221027
  Serious: No
  Sender: FDA-Public Use
  Company Number: US-LUPIN PHARMACEUTICALS INC.-2022-09463

PATIENT
  Sex: Female

DRUGS (3)
  1. NIKKI [Suspect]
     Active Substance: DROSPIRENONE\ETHINYL ESTRADIOL
     Indication: Premenstrual dysphoric disorder
     Dosage: UNK UNK, QD,  3 MG/0.02 MG TAKEN DAILY FOR 28 DAYS
     Route: 065
     Dates: start: 202112
  2. NIKKI [Suspect]
     Active Substance: DROSPIRENONE\ETHINYL ESTRADIOL
     Indication: Endometriosis
  3. METHYLPHENIDATE HYDROCHLORIDE [Concomitant]
     Active Substance: METHYLPHENIDATE HYDROCHLORIDE
     Indication: Depression

REACTIONS (4)
  - Anxiety [Recovering/Resolving]
  - Depression [Unknown]
  - Panic attack [Unknown]
  - Off label use [Unknown]

NARRATIVE: CASE EVENT DATE: 20220201
